FAERS Safety Report 12216231 (Version 2)
Quarter: 2016Q2

REPORT INFORMATION
  Report Type: Report from Study
  Country: SK (occurrence: SK)
  Receive Date: 20160329
  Receipt Date: 20160510
  Transmission Date: 20160815
  Serious: Yes (Hospitalization, Other)
  Sender: FDA-Public Use
  Company Number: SK-PFIZER INC-2016165953

PATIENT
  Age: 58 Year
  Sex: Female
  Weight: 81.5 kg

DRUGS (5)
  1. CO PRENESSA [Concomitant]
     Indication: HYPERTENSION
     Dosage: 8 MG/ 2.5 MG, DAILY
     Route: 048
  2. TOFACITINIB CITRATE [Suspect]
     Active Substance: TOFACITINIB CITRATE
     Indication: RHEUMATOID ARTHRITIS
     Dosage: UNK UNK, 2X/DAY
     Route: 048
     Dates: start: 20080630, end: 20160314
  3. METHOTREXATE [Concomitant]
     Active Substance: METHOTREXATE
     Indication: RHEUMATOID ARTHRITIS
     Dosage: 10 MG, WEEKLY
     Route: 048
     Dates: start: 20060915, end: 20160314
  4. ANOPYRIN [Concomitant]
     Active Substance: ASPIRIN
     Indication: HYPERTENSION
     Dosage: 100 MG, DAILY
     Route: 048
  5. DICLOBENE [Concomitant]
     Active Substance: DICLOFENAC SODIUM
     Indication: RHEUMATOID ARTHRITIS
     Dosage: 50 MG, DAILY
     Route: 048

REACTIONS (1)
  - Lung neoplasm malignant [Not Recovered/Not Resolved]

NARRATIVE: CASE EVENT DATE: 20160317
